FAERS Safety Report 7523113-4 (Version None)
Quarter: 2011Q2

REPORT INFORMATION
  Report Type: 
  Country: None (occurrence: None)
  Receive Date: 20110603
  Receipt Date: 20110517
  Transmission Date: 20111010
  Serious: Yes (Death, Hospitalization)
  Sender: FDA-Public Use
  Company Number: US-CELGENEUS-163-21660-11052753

PATIENT
  Sex: Male
  Weight: 71.278 kg

DRUGS (3)
  1. PLATELETS [Concomitant]
     Route: 051
  2. ABRAXANE [Suspect]
     Indication: BLADDER CANCER
     Route: 051
  3. RED BLOOD CELLS [Concomitant]
     Route: 051

REACTIONS (5)
  - RENAL FAILURE ACUTE [None]
  - NEUTROPENIA [None]
  - ACUTE RESPIRATORY DISTRESS SYNDROME [None]
  - CEREBRAL HAEMORRHAGE [None]
  - DEHYDRATION [None]
